FAERS Safety Report 11739645 (Version 2)
Quarter: 2015Q4

REPORT INFORMATION
  Report Type: Spontaneous
  Country: US (occurrence: US)
  Receive Date: 20151110
  Receipt Date: 20151120
  Transmission Date: 20160304
  Serious: No
  Sender: FDA-Public Use
  Company Number: US-ELI_LILLY_AND_COMPANY-US201208008276

PATIENT
  Age: 66 Year
  Sex: Female

DRUGS (2)
  1. FORTEO [Suspect]
     Active Substance: TERIPARATIDE
     Dosage: 20 UG, QD
     Route: 065
     Dates: start: 20120923
  2. FORTEO [Suspect]
     Active Substance: TERIPARATIDE
     Indication: IMPAIRED HEALING
     Dosage: 20 UG, QD
     Route: 065
     Dates: start: 20120824

REACTIONS (7)
  - Anxiety [Unknown]
  - Dysgeusia [Unknown]
  - Restlessness [Unknown]
  - Bone pain [Unknown]
  - Blister [Recovered/Resolved]
  - Underdose [Unknown]
  - Off label use [Unknown]

NARRATIVE: CASE EVENT DATE: 201208
